FAERS Safety Report 11904229 (Version 1)
Quarter: 2016Q1

REPORT INFORMATION
  Report Type: Report from Study
  Country: US (occurrence: US)
  Receive Date: 20160108
  Receipt Date: 20160108
  Transmission Date: 20160526
  Serious: No
  Sender: FDA-Public Use
  Company Number: US-ABBVIE-15P-163-1519346-00

PATIENT
  Sex: Female

DRUGS (2)
  1. RIBAVIRIN. [Concomitant]
     Active Substance: RIBAVIRIN
     Indication: HEPATITIS C
  2. VIEKIRA PAK [Suspect]
     Active Substance: DASABUVIR\OMBITASVIR\PARITAPREVIR\RITONAVIR
     Indication: HEPATITIS C
     Dosage: IN THE AM AND THE PM
     Route: 048
     Dates: start: 20151024

REACTIONS (10)
  - Pyrexia [Recovering/Resolving]
  - Insomnia [Recovering/Resolving]
  - Mood swings [Recovering/Resolving]
  - Palpitations [Recovering/Resolving]
  - Hallucination [Recovering/Resolving]
  - Hepatic enzyme decreased [Recovering/Resolving]
  - Malaise [Recovering/Resolving]
  - Emotional disorder [Recovering/Resolving]
  - Feeling abnormal [Recovering/Resolving]
  - Food craving [Recovering/Resolving]
